FAERS Safety Report 4266070-9 (Version None)
Quarter: 2004Q1

REPORT INFORMATION
  Report Type: 
  Country: None (occurrence: None)
  Receive Date: 20040106
  Receipt Date: 20031224
  Transmission Date: 20041129
  Serious: Yes (Hospitalization)
  Sender: FDA-Public Use
  Company Number: 200313851GDS

PATIENT
  Age: 56 Year
  Sex: Female

DRUGS (19)
  1. ASPIRIN [Suspect]
     Dates: start: 20020512, end: 20020523
  2. LEVOFLOXACIN [Suspect]
     Dates: start: 20020517, end: 20020521
  3. TIENAM [Suspect]
     Dates: start: 20020508, end: 20020516
  4. DALACIN (CLINDAMYCIN HYDROCHLORIDE) [Suspect]
     Dates: start: 20020508, end: 20020516
  5. LOXONIN (LOXOPROFEN SODIUM) [Suspect]
     Dates: start: 20020506, end: 20020515
  6. SERENACE (HALOPERIDOL) [Suspect]
     Dates: start: 20020430, end: 20020519
  7. ESTAZOLAM [Suspect]
     Dates: start: 20020517, end: 20020525
  8. GRAMALIL (TIAPRIDE HYDROCHLORIDE) [Suspect]
     Dates: start: 20020506, end: 20020521
  9. FOIPAN (CAMOSTAT MESILATE) [Suspect]
     Dates: start: 20020516, end: 20020521
  10. ATARAX [Suspect]
     Dates: start: 20020506, end: 20020524
  11. FAMOTIDINE [Suspect]
     Dates: start: 20020426, end: 20020521
  12. MUCOSTA (REBAMIPIDE) [Suspect]
     Dates: start: 20020506, end: 20020515
  13. ALDACTONE [Suspect]
     Dates: start: 20020515, end: 20020523
  14. LASIX [Suspect]
     Dates: start: 20020426, end: 20020601
  15. MANNITOL [Suspect]
     Dates: start: 20020428, end: 20020514
  16. HITROPEN (UNCODEABLE   UNCLASSIFIABLE) [Suspect]
     Dates: start: 20020515
  17. DIGOXIN [Suspect]
     Dates: start: 20020512, end: 20020601
  18. WARFARIN SODIUM [Suspect]
     Dates: start: 20020512, end: 20020524
  19. SELBEX (TEPRENONE) [Suspect]
     Dates: start: 20020502, end: 20020522

REACTIONS (15)
  - ALANINE AMINOTRANSFERASE INCREASED [None]
  - ASPARTATE AMINOTRANSFERASE INCREASED [None]
  - BLOOD ALBUMIN DECREASED [None]
  - BLOOD ALKALINE PHOSPHATASE INCREASED [None]
  - BLOOD CHLORIDE DECREASED [None]
  - BLOOD CREATINE PHOSPHOKINASE INCREASED [None]
  - BLOOD LACTATE DEHYDROGENASE INCREASED [None]
  - BLOOD POTASSIUM DECREASED [None]
  - BLOOD SODIUM DECREASED [None]
  - BLOOD URIC ACID INCREASED [None]
  - BODY TEMPERATURE DECREASED [None]
  - GAMMA-GLUTAMYLTRANSFERASE INCREASED [None]
  - LIPASE INCREASED [None]
  - PROTEIN TOTAL DECREASED [None]
  - TOXIC EPIDERMAL NECROLYSIS [None]
